FAERS Safety Report 18679626 (Version 1)
Quarter: 2020Q4

REPORT INFORMATION
  Report Type: Spontaneous
  Country: US (occurrence: US)
  Receive Date: 20201229
  Receipt Date: 20201229
  Transmission Date: 20210114
  Serious: No
  Sender: FDA-Public Use
  Company Number: US-TEVA-2020-US-1862692

PATIENT
  Sex: Male

DRUGS (1)
  1. TADAFIL [Suspect]
     Active Substance: TADALAFIL
     Route: 065

REACTIONS (2)
  - Blood iron increased [Unknown]
  - Product coating issue [Unknown]
